FAERS Safety Report 8186793-9 (Version None)
Quarter: 2012Q1

REPORT INFORMATION
  Report Type: 
  Country: None (occurrence: None)
  Receive Date: 20120306
  Receipt Date: 20120306
  Transmission Date: 20120608
  Serious: No
  Sender: FDA-Public Use
  Company Number: None

PATIENT
  Age: 54 Year
  Sex: Male
  Weight: 96.161 kg

DRUGS (1)
  1. LIVALO [Suspect]
     Indication: BLOOD CHOLESTEROL INCREASED
     Dosage: 1 NIGHTLY
     Dates: start: 20110903, end: 20120303

REACTIONS (4)
  - BACK PAIN [None]
  - MYALGIA [None]
  - ARTHRALGIA [None]
  - JOB CHANGE [None]
